FAERS Safety Report 9315582 (Version 1)
Quarter: 2013Q2

REPORT INFORMATION
  Report Type: Spontaneous
  Country: DE (occurrence: DE)
  Receive Date: 20130529
  Receipt Date: 20130529
  Transmission Date: 20140414
  Serious: Yes (Other)
  Sender: FDA-Public Use
  Company Number: DE-TEVA-405754GER

PATIENT
  Age: 38 Year
  Sex: Female
  Weight: 64 kg

DRUGS (7)
  1. VENLAFAXINE [Suspect]
     Indication: BIPOLAR DISORDER
     Route: 048
     Dates: start: 20111102, end: 20120727
  2. VENLAFAXINE [Suspect]
     Dosage: 75 MILLIGRAM DAILY; 75 MG/D/ SINCE 2009
     Route: 048
     Dates: start: 2009
  3. QUILONORM RETARD [Suspect]
     Indication: BIPOLAR DISORDER
     Dosage: (3X 450 TO 1125 ) BETWEEN 7.5. AND 30.5.(GW 27-30) INCREASED TO 1350 MG/D
     Route: 048
     Dates: start: 20111102, end: 20120727
  4. QUILONORM RETARD [Suspect]
     Dosage: 1350 MILLIGRAM DAILY; 1350 MG/D / SINCE 2009
     Route: 048
     Dates: start: 2009
  5. SEROQUEL PROLONG [Suspect]
     Indication: BIPOLAR DISORDER
     Route: 048
     Dates: start: 20111102, end: 20120727
  6. SEROQUEL PROLONG [Suspect]
     Dosage: 200 MILLIGRAM DAILY; 200 MG/D / SINCE 2009
     Route: 048
     Dates: start: 2009
  7. FOLS?URE RATIOPHARM [Concomitant]
     Indication: PROPHYLAXIS OF NEURAL TUBE DEFECT
     Dosage: 5 MG/D
     Route: 048
     Dates: start: 20111102, end: 20120727

REACTIONS (2)
  - Polyhydramnios [Recovered/Resolved]
  - Gestational diabetes [Recovered/Resolved]
